FAERS Safety Report 7585721-4 (Version None)
Quarter: 2011Q2

REPORT INFORMATION
  Report Type: 
  Country: None (occurrence: None)
  Receive Date: 20110629
  Receipt Date: 20110629
  Transmission Date: 20111010
  Serious: Yes (Death)
  Sender: FDA-Public Use
  Company Number: None

PATIENT
  Age: 64 Year
  Sex: Female

DRUGS (3)
  1. REVLIMID [Suspect]
     Indication: NON-HODGKIN'S LYMPHOMA
     Dosage: REVLIMID 10MG DAILY X21D/28D ORALLY
     Route: 048
     Dates: start: 20101201, end: 20110201
  2. HYDROCODONE BITARTRATE AND ACETAMINOPHEN [Concomitant]
  3. REVLIMID [Suspect]
     Dosage: REVLIMID 10MG EVERY OTHER DAY ORALLY
     Route: 048

REACTIONS (6)
  - DIZZINESS [None]
  - ASTHENIA [None]
  - SALIVA ALTERED [None]
  - DYSPNOEA [None]
  - GASTROINTESTINAL HAEMORRHAGE [None]
  - FAECES DISCOLOURED [None]
